FAERS Safety Report 4691876-1 (Version None)
Quarter: 2005Q2

REPORT INFORMATION
  Report Type: 
  Country: None (occurrence: None)
  Receive Date: 20050615
  Receipt Date: 20050615
  Transmission Date: 20051028
  Serious: Yes (Hospitalization)
  Sender: FDA-Public Use
  Company Number: None

PATIENT
  Age: 57 Year
  Sex: Male
  Weight: 95.9 kg

DRUGS (9)
  1. MESALAMINE [Suspect]
     Indication: CROHN'S DISEASE
     Dosage: 800 MG P.O. TID
     Route: 048
     Dates: start: 20050329, end: 20050426
  2. METRONIDAZOLE [Concomitant]
  3. PROCHLORPERAZINE [Concomitant]
  4. AMOXICILLIN [Concomitant]
  5. FLUNISOLIDE [Concomitant]
  6. LOPERAMIDE [Concomitant]
  7. ATORVASTATIN CALCIUM [Concomitant]
  8. DILTIAZEM [Concomitant]
  9. OMEPRAZOLE [Concomitant]

REACTIONS (3)
  - HEADACHE [None]
  - PYREXIA [None]
  - RASH [None]
